FAERS Safety Report 24900499 (Version 2)
Quarter: 2025Q1

REPORT INFORMATION
  Report Type: Spontaneous
  Country: CA (occurrence: CA)
  Receive Date: 20250129
  Receipt Date: 20250205
  Transmission Date: 20250409
  Serious: Yes (Death, Life-Threatening, Hospitalization, Disabling, Congenital Anomaly, Other)
  Sender: SANDOZ
  Company Number: CA-SANDOZ-SDZ2025CA005039

PATIENT
  Age: 40 Year
  Sex: Female

DRUGS (184)
  1. ADALIMUMAB [Suspect]
     Active Substance: ADALIMUMAB
     Indication: Rheumatoid arthritis
     Route: 058
  2. ADALIMUMAB [Suspect]
     Active Substance: ADALIMUMAB
     Route: 065
  3. ADALIMUMAB [Suspect]
     Active Substance: ADALIMUMAB
     Route: 058
  4. APREMILAST [Suspect]
     Active Substance: APREMILAST
     Indication: Rheumatoid arthritis
     Route: 065
  5. ACETAMINOPHEN [Suspect]
     Active Substance: ACETAMINOPHEN
     Route: 065
  6. ACETAMINOPHEN [Suspect]
     Active Substance: ACETAMINOPHEN
     Route: 065
  7. ACETAMINOPHEN [Suspect]
     Active Substance: ACETAMINOPHEN
     Indication: Rheumatoid arthritis
     Route: 065
  8. ACETAMINOPHEN [Suspect]
     Active Substance: ACETAMINOPHEN
     Route: 065
  9. ACETAMINOPHEN [Suspect]
     Active Substance: ACETAMINOPHEN
     Route: 065
  10. ACTEMRA [Suspect]
     Active Substance: TOCILIZUMAB
     Route: 058
  11. ACTEMRA [Suspect]
     Active Substance: TOCILIZUMAB
     Route: 065
  12. ACTEMRA [Suspect]
     Active Substance: TOCILIZUMAB
     Route: 058
  13. ACTEMRA [Suspect]
     Active Substance: TOCILIZUMAB
     Route: 058
  14. ACTEMRA [Suspect]
     Active Substance: TOCILIZUMAB
     Route: 058
  15. ACTEMRA [Suspect]
     Active Substance: TOCILIZUMAB
     Route: 065
  16. ACTEMRA [Suspect]
     Active Substance: TOCILIZUMAB
     Route: 058
  17. ACTEMRA [Suspect]
     Active Substance: TOCILIZUMAB
     Route: 058
  18. ACTEMRA [Suspect]
     Active Substance: TOCILIZUMAB
     Route: 058
  19. ACTEMRA [Suspect]
     Active Substance: TOCILIZUMAB
     Route: 058
  20. ACTEMRA [Suspect]
     Active Substance: TOCILIZUMAB
     Route: 058
  21. ACTEMRA [Suspect]
     Active Substance: TOCILIZUMAB
     Route: 058
  22. ACTEMRA [Suspect]
     Active Substance: TOCILIZUMAB
     Route: 065
  23. ACTEMRA [Suspect]
     Active Substance: TOCILIZUMAB
     Route: 065
  24. ACTEMRA [Suspect]
     Active Substance: TOCILIZUMAB
     Route: 016
  25. ACTEMRA [Suspect]
     Active Substance: TOCILIZUMAB
     Route: 058
  26. ACTEMRA [Suspect]
     Active Substance: TOCILIZUMAB
     Indication: Rheumatoid arthritis
     Route: 065
  27. AIMOVIG [Suspect]
     Active Substance: ERENUMAB-AOOE
     Indication: Migraine
     Route: 065
  28. AIMOVIG [Suspect]
     Active Substance: ERENUMAB-AOOE
     Route: 065
  29. ALENDRONIC ACID [Suspect]
     Active Substance: ALENDRONIC ACID
     Route: 016
  30. ALENDRONIC ACID [Suspect]
     Active Substance: ALENDRONIC ACID
     Indication: Rheumatoid arthritis
     Route: 048
  31. ALENDRONIC ACID [Suspect]
     Active Substance: ALENDRONIC ACID
     Route: 048
  32. ALENDRONIC ACID [Suspect]
     Active Substance: ALENDRONIC ACID
     Route: 048
  33. ALENDRONIC ACID [Suspect]
     Active Substance: ALENDRONIC ACID
     Route: 048
  34. ALENDRONIC ACID [Suspect]
     Active Substance: ALENDRONIC ACID
     Route: 065
  35. ALENDRONIC ACID [Suspect]
     Active Substance: ALENDRONIC ACID
     Route: 065
  36. ALENDRONIC ACID [Suspect]
     Active Substance: ALENDRONIC ACID
     Route: 065
  37. ALENDRONIC ACID [Suspect]
     Active Substance: ALENDRONIC ACID
     Route: 065
  38. LEFLUNOMIDE [Suspect]
     Active Substance: LEFLUNOMIDE
     Route: 065
  39. LEFLUNOMIDE [Suspect]
     Active Substance: LEFLUNOMIDE
     Route: 048
  40. LEFLUNOMIDE [Suspect]
     Active Substance: LEFLUNOMIDE
     Indication: Rheumatoid arthritis
     Route: 065
  41. LEFLUNOMIDE [Suspect]
     Active Substance: LEFLUNOMIDE
     Dosage: 20 MG, QD
     Route: 048
  42. LEFLUNOMIDE [Suspect]
     Active Substance: LEFLUNOMIDE
     Route: 065
  43. LEFLUNOMIDE [Suspect]
     Active Substance: LEFLUNOMIDE
     Route: 065
  44. LEFLUNOMIDE [Suspect]
     Active Substance: LEFLUNOMIDE
     Route: 048
  45. LEFLUNOMIDE [Suspect]
     Active Substance: LEFLUNOMIDE
     Route: 065
  46. LEFLUNOMIDE [Suspect]
     Active Substance: LEFLUNOMIDE
     Route: 048
  47. LEFLUNOMIDE [Suspect]
     Active Substance: LEFLUNOMIDE
     Route: 048
  48. LEFLUNOMIDE [Suspect]
     Active Substance: LEFLUNOMIDE
     Route: 048
  49. APREMILAST [Suspect]
     Active Substance: APREMILAST
     Indication: Rheumatoid arthritis
     Dosage: 6 MG, QD
     Route: 048
  50. ARAVA [Suspect]
     Active Substance: LEFLUNOMIDE
     Dosage: 20 MG, QD
     Route: 048
  51. ARAVA [Suspect]
     Active Substance: LEFLUNOMIDE
     Indication: Rheumatoid arthritis
     Route: 048
  52. ARAVA [Suspect]
     Active Substance: LEFLUNOMIDE
     Route: 048
  53. ARAVA [Suspect]
     Active Substance: LEFLUNOMIDE
     Route: 048
  54. ARAVA [Suspect]
     Active Substance: LEFLUNOMIDE
     Route: 065
  55. ARAVA [Suspect]
     Active Substance: LEFLUNOMIDE
     Route: 065
  56. ARAVA [Suspect]
     Active Substance: LEFLUNOMIDE
     Route: 065
  57. BERINERT [Suspect]
     Active Substance: HUMAN C1-ESTERASE INHIBITOR
     Indication: Product used for unknown indication
     Route: 065
  58. BOTULINUM TOXIN TYPE A [Suspect]
     Active Substance: BOTULINUM TOXIN TYPE A
     Indication: Product used for unknown indication
     Route: 065
  59. BUTRANS [Suspect]
     Active Substance: BUPRENORPHINE
     Indication: Product used for unknown indication
     Route: 065
  60. CANDESARTAN [Suspect]
     Active Substance: CANDESARTAN
     Indication: Migraine
     Route: 065
  61. CELECOXIB [Suspect]
     Active Substance: CELECOXIB
     Indication: Product used for unknown indication
     Dosage: 1 DF, QD
     Route: 065
  62. CELECOXIB [Suspect]
     Active Substance: CELECOXIB
     Dosage: 2 DF, QD
     Route: 048
  63. CERTOLIZUMAB PEGOL [Suspect]
     Active Substance: CERTOLIZUMAB PEGOL
     Indication: Product used for unknown indication
     Route: 058
  64. CERTOLIZUMAB PEGOL [Suspect]
     Active Substance: CERTOLIZUMAB PEGOL
     Route: 058
  65. CERTOLIZUMAB PEGOL [Suspect]
     Active Substance: CERTOLIZUMAB PEGOL
     Route: 058
  66. CERTOLIZUMAB PEGOL [Suspect]
     Active Substance: CERTOLIZUMAB PEGOL
     Route: 065
  67. CERTOLIZUMAB PEGOL [Suspect]
     Active Substance: CERTOLIZUMAB PEGOL
     Route: 065
  68. CETIRIZINE HYDROCHLORIDE [Suspect]
     Active Substance: CETIRIZINE HYDROCHLORIDE
     Route: 048
  69. CETIRIZINE HYDROCHLORIDE [Suspect]
     Active Substance: CETIRIZINE HYDROCHLORIDE
     Route: 065
  70. CETIRIZINE HYDROCHLORIDE [Suspect]
     Active Substance: CETIRIZINE HYDROCHLORIDE
     Route: 065
  71. CETIRIZINE HYDROCHLORIDE [Suspect]
     Active Substance: CETIRIZINE HYDROCHLORIDE
     Route: 065
  72. CETIRIZINE HYDROCHLORIDE [Suspect]
     Active Substance: CETIRIZINE HYDROCHLORIDE
     Route: 065
  73. CETIRIZINE HYDROCHLORIDE [Suspect]
     Active Substance: CETIRIZINE HYDROCHLORIDE
     Route: 065
  74. CETIRIZINE HYDROCHLORIDE [Suspect]
     Active Substance: CETIRIZINE HYDROCHLORIDE
     Route: 065
  75. CETIRIZINE HYDROCHLORIDE [Suspect]
     Active Substance: CETIRIZINE HYDROCHLORIDE
     Route: 048
  76. CETIRIZINE HYDROCHLORIDE [Suspect]
     Active Substance: CETIRIZINE HYDROCHLORIDE
     Route: 048
  77. CETIRIZINE HYDROCHLORIDE [Suspect]
     Active Substance: CETIRIZINE HYDROCHLORIDE
     Route: 065
  78. CETIRIZINE HYDROCHLORIDE [Suspect]
     Active Substance: CETIRIZINE HYDROCHLORIDE
     Route: 065
  79. CETIRIZINE HYDROCHLORIDE [Suspect]
     Active Substance: CETIRIZINE HYDROCHLORIDE
     Route: 065
  80. CETIRIZINE HYDROCHLORIDE [Suspect]
     Active Substance: CETIRIZINE HYDROCHLORIDE
     Route: 065
  81. CETIRIZINE HYDROCHLORIDE [Suspect]
     Active Substance: CETIRIZINE HYDROCHLORIDE
     Route: 065
  82. CETIRIZINE HYDROCHLORIDE [Suspect]
     Active Substance: CETIRIZINE HYDROCHLORIDE
     Route: 065
  83. CETIRIZINE HYDROCHLORIDE [Suspect]
     Active Substance: CETIRIZINE HYDROCHLORIDE
     Route: 065
  84. CETIRIZINE HYDROCHLORIDE [Suspect]
     Active Substance: CETIRIZINE HYDROCHLORIDE
     Route: 065
  85. CETIRIZINE HYDROCHLORIDE [Suspect]
     Active Substance: CETIRIZINE HYDROCHLORIDE
     Route: 065
  86. CETIRIZINE HYDROCHLORIDE [Suspect]
     Active Substance: CETIRIZINE HYDROCHLORIDE
     Route: 065
  87. CETIRIZINE HYDROCHLORIDE [Suspect]
     Active Substance: CETIRIZINE HYDROCHLORIDE
     Route: 065
  88. CETIRIZINE HYDROCHLORIDE [Suspect]
     Active Substance: CETIRIZINE HYDROCHLORIDE
     Route: 065
  89. CETIRIZINE HYDROCHLORIDE [Suspect]
     Active Substance: CETIRIZINE HYDROCHLORIDE
     Route: 016
  90. CETIRIZINE HYDROCHLORIDE [Suspect]
     Active Substance: CETIRIZINE HYDROCHLORIDE
     Indication: Rheumatoid arthritis
     Route: 065
  91. CHLORHEXIDINE GLUCONATE [Suspect]
     Active Substance: CHLORHEXIDINE GLUCONATE
     Indication: Product used for unknown indication
     Route: 065
  92. CHLORHEXIDINE GLUCONATE [Suspect]
     Active Substance: CHLORHEXIDINE GLUCONATE
     Route: 065
  93. CHLORHEXIDINE GLUCONATE [Suspect]
     Active Substance: CHLORHEXIDINE GLUCONATE
     Route: 065
  94. CIMZIA [Suspect]
     Active Substance: CERTOLIZUMAB PEGOL
     Indication: Psoriasis
     Route: 058
  95. CIMZIA [Suspect]
     Active Substance: CERTOLIZUMAB PEGOL
     Indication: Rheumatoid arthritis
     Route: 058
  96. CIMZIA [Suspect]
     Active Substance: CERTOLIZUMAB PEGOL
     Route: 058
  97. COSENTYX [Suspect]
     Active Substance: SECUKINUMAB
     Indication: Psoriatic arthropathy
     Route: 065
  98. COSENTYX [Suspect]
     Active Substance: SECUKINUMAB
     Indication: Rheumatoid arthritis
     Route: 065
  99. COSENTYX [Suspect]
     Active Substance: SECUKINUMAB
     Route: 065
  100. DICLOFENAC SODIUM [Suspect]
     Active Substance: DICLOFENAC SODIUM
     Indication: Product used for unknown indication
     Route: 065
  101. DICLOFENAC SODIUM [Suspect]
     Active Substance: DICLOFENAC SODIUM
     Route: 065
  102. DICLOFENAC SODIUM [Suspect]
     Active Substance: DICLOFENAC SODIUM
     Route: 058
  103. DICLOFENAC SODIUM [Suspect]
     Active Substance: DICLOFENAC SODIUM
     Route: 065
  104. DESOXIMETASONE [Suspect]
     Active Substance: DESOXIMETASONE
     Indication: Product used for unknown indication
     Route: 048
  105. DESOXIMETASONE [Suspect]
     Active Substance: DESOXIMETASONE
     Route: 065
  106. DESOXIMETASONE [Suspect]
     Active Substance: DESOXIMETASONE
     Route: 048
  107. DESOXIMETASONE [Suspect]
     Active Substance: DESOXIMETASONE
     Route: 058
  108. DESOXIMETASONE [Suspect]
     Active Substance: DESOXIMETASONE
     Route: 058
  109. DESOXIMETASONE [Suspect]
     Active Substance: DESOXIMETASONE
     Route: 065
  110. DESOXIMETASONE [Suspect]
     Active Substance: DESOXIMETASONE
     Route: 065
  111. DESOXIMETASONE [Suspect]
     Active Substance: DESOXIMETASONE
     Route: 065
  112. DESOXIMETASONE [Suspect]
     Active Substance: DESOXIMETASONE
     Route: 065
  113. DICLOFENAC DIETHYLAMINE [Suspect]
     Active Substance: DICLOFENAC DIETHYLAMINE
     Indication: Product used for unknown indication
     Route: 065
  114. DOMPERIDONE MALEATE [Suspect]
     Active Substance: DOMPERIDONE MALEATE
     Indication: Product used for unknown indication
     Route: 065
  115. ENBREL [Suspect]
     Active Substance: ETANERCEPT
     Indication: Rheumatoid arthritis
     Dosage: 10 MG, QW
     Route: 065
  116. ENBREL [Suspect]
     Active Substance: ETANERCEPT
     Route: 058
  117. ENBREL [Suspect]
     Active Substance: ETANERCEPT
     Dosage: 50 MG, QW
     Route: 058
  118. ENBREL [Suspect]
     Active Substance: ETANERCEPT
     Route: 058
  119. ENBREL [Suspect]
     Active Substance: ETANERCEPT
     Route: 058
  120. ENBREL [Suspect]
     Active Substance: ETANERCEPT
     Route: 058
  121. ENBREL [Suspect]
     Active Substance: ETANERCEPT
     Route: 065
  122. ENBREL [Suspect]
     Active Substance: ETANERCEPT
     Route: 065
  123. ENBREL [Suspect]
     Active Substance: ETANERCEPT
     Route: 065
  124. ENBREL [Suspect]
     Active Substance: ETANERCEPT
     Route: 065
  125. ENBREL [Suspect]
     Active Substance: ETANERCEPT
     Route: 065
  126. ENBREL [Suspect]
     Active Substance: ETANERCEPT
     Route: 065
  127. ENBREL [Suspect]
     Active Substance: ETANERCEPT
     Route: 065
  128. ENBREL [Suspect]
     Active Substance: ETANERCEPT
     Route: 065
  129. ENBREL [Suspect]
     Active Substance: ETANERCEPT
     Route: 065
  130. ENBREL [Suspect]
     Active Substance: ETANERCEPT
     Route: 058
  131. FLUMETHASONE [Suspect]
     Active Substance: FLUMETHASONE
     Indication: Product used for unknown indication
     Route: 065
  132. FLUMETHASONE PIVALATE [Suspect]
     Active Substance: FLUMETHASONE PIVALATE
     Indication: Product used for unknown indication
     Route: 065
  133. FOLIC ACID [Suspect]
     Active Substance: FOLIC ACID
     Indication: Rheumatoid arthritis
     Route: 048
  134. FOLIC ACID [Suspect]
     Active Substance: FOLIC ACID
     Route: 065
  135. FOLIC ACID [Suspect]
     Active Substance: FOLIC ACID
     Route: 058
  136. FOLIC ACID [Suspect]
     Active Substance: FOLIC ACID
     Route: 065
  137. FOLIC ACID [Suspect]
     Active Substance: FOLIC ACID
     Route: 048
  138. FOLIC ACID [Suspect]
     Active Substance: FOLIC ACID
     Route: 065
  139. FOLIC ACID [Suspect]
     Active Substance: FOLIC ACID
     Route: 048
  140. FOLIC ACID [Suspect]
     Active Substance: FOLIC ACID
     Route: 065
  141. FOLIC ACID [Suspect]
     Active Substance: FOLIC ACID
     Route: 065
  142. FOLIC ACID [Suspect]
     Active Substance: FOLIC ACID
     Route: 065
  143. FOLIC ACID [Suspect]
     Active Substance: FOLIC ACID
     Route: 048
  144. FOLIC ACID [Suspect]
     Active Substance: FOLIC ACID
     Route: 065
  145. FOLIC ACID [Suspect]
     Active Substance: FOLIC ACID
     Route: 065
  146. FOSAMAX [Suspect]
     Active Substance: ALENDRONATE SODIUM
     Route: 065
  147. FOSAMAX [Suspect]
     Active Substance: ALENDRONATE SODIUM
     Route: 016
  148. FOSAMAX [Suspect]
     Active Substance: ALENDRONATE SODIUM
     Route: 048
  149. FOSAMAX [Suspect]
     Active Substance: ALENDRONATE SODIUM
     Route: 058
  150. FOSAMAX [Suspect]
     Active Substance: ALENDRONATE SODIUM
     Indication: Rheumatoid arthritis
     Route: 065
  151. IMURAN [Suspect]
     Active Substance: AZATHIOPRINE
     Indication: Product used for unknown indication
     Route: 065
  152. SULFASALAZINE [Suspect]
     Active Substance: SULFASALAZINE
     Indication: Rheumatoid arthritis
     Route: 065
  153. SIMPONI [Suspect]
     Active Substance: GOLIMUMAB
     Indication: Product used for unknown indication
     Route: 058
  154. SIMPONI [Suspect]
     Active Substance: GOLIMUMAB
     Route: 058
  155. SIMPONI [Suspect]
     Active Substance: GOLIMUMAB
     Route: 065
  156. SIMPONI [Suspect]
     Active Substance: GOLIMUMAB
     Indication: Rheumatoid arthritis
     Route: 058
  157. SIRUKUMAB [Suspect]
     Active Substance: SIRUKUMAB
     Indication: Product used for unknown indication
     Route: 065
  158. SIRUKUMAB [Suspect]
     Active Substance: SIRUKUMAB
     Route: 065
  159. GOLD SODIUM THIOMALATE [Suspect]
     Active Substance: GOLD SODIUM THIOMALATE
     Route: 048
  160. GOLD SODIUM THIOMALATE [Suspect]
     Active Substance: GOLD SODIUM THIOMALATE
     Indication: Product used for unknown indication
     Route: 065
  161. GOLD SODIUM THIOMALATE [Suspect]
     Active Substance: GOLD SODIUM THIOMALATE
     Route: 065
  162. SULFASALAZINE [Suspect]
     Active Substance: SULFASALAZINE
     Route: 058
  163. SULFASALAZINE [Suspect]
     Active Substance: SULFASALAZINE
     Route: 048
  164. SULFASALAZINE [Suspect]
     Active Substance: SULFASALAZINE
     Route: 058
  165. SULFASALAZINE [Suspect]
     Active Substance: SULFASALAZINE
     Route: 048
  166. SULFASALAZINE [Suspect]
     Active Substance: SULFASALAZINE
     Route: 048
  167. SULFASALAZINE [Suspect]
     Active Substance: SULFASALAZINE
     Route: 065
  168. SULFASALAZINE [Suspect]
     Active Substance: SULFASALAZINE
     Dosage: 1000 MG, QD
     Route: 048
  169. SULFASALAZINE [Suspect]
     Active Substance: SULFASALAZINE
     Route: 016
  170. SULFASALAZINE [Suspect]
     Active Substance: SULFASALAZINE
     Dosage: 2 G, QD
     Route: 058
  171. SULFASALAZINE [Suspect]
     Active Substance: SULFASALAZINE
     Dosage: 2 DF, QD
     Route: 048
  172. SULFASALAZINE [Suspect]
     Active Substance: SULFASALAZINE
     Dosage: 2 DF, QD
     Route: 065
  173. SULFASALAZINE [Suspect]
     Active Substance: SULFASALAZINE
     Dosage: 2000 MG, QD
     Route: 048
  174. SULFASALAZINE [Suspect]
     Active Substance: SULFASALAZINE
     Indication: Rheumatoid arthritis
     Dosage: 300 MG, QD
     Route: 065
  175. SULFASALAZINE [Suspect]
     Active Substance: SULFASALAZINE
     Dosage: 4 MG, QD
     Route: 058
  176. SULFASALAZINE [Suspect]
     Active Substance: SULFASALAZINE
     Route: 058
  177. SULFASALAZINE [Suspect]
     Active Substance: SULFASALAZINE
     Route: 016
  178. SULFASALAZINE [Suspect]
     Active Substance: SULFASALAZINE
     Route: 048
  179. SULFASALAZINE [Suspect]
     Active Substance: SULFASALAZINE
     Route: 058
  180. SULFASALAZINE [Suspect]
     Active Substance: SULFASALAZINE
     Route: 065
  181. SULFASALAZINE [Suspect]
     Active Substance: SULFASALAZINE
     Route: 065
  182. SULFASALAZINE [Suspect]
     Active Substance: SULFASALAZINE
     Route: 065
  183. SULFASALAZINE [Suspect]
     Active Substance: SULFASALAZINE
     Route: 065
  184. SULFASALAZINE [Suspect]
     Active Substance: SULFASALAZINE
     Route: 048

REACTIONS (10)
  - Bursitis [Fatal]
  - Fall [Fatal]
  - Finger deformity [Fatal]
  - Folliculitis [Fatal]
  - Gastrooesophageal reflux disease [Fatal]
  - Hepatitis [Fatal]
  - Hypoaesthesia [Fatal]
  - Inflammation [Fatal]
  - Injury [Fatal]
  - Liver function test increased [Fatal]
